FAERS Safety Report 4688094-X (Version None)
Quarter: 2005Q2

REPORT INFORMATION
  Report Type: 
  Country: None (occurrence: None)
  Receive Date: 20050610
  Receipt Date: 20050602
  Transmission Date: 20051028
  Serious: Yes (Other)
  Sender: FDA-Public Use
  Company Number: US-KINGPHARMUSA00001-K200500767

PATIENT
  Sex: Female

DRUGS (2)
  1. FLORINEF [Suspect]
     Route: 048
  2. SUDAFED 12 HOUR [Suspect]
     Indication: HEADACHE

REACTIONS (4)
  - BLINDNESS [None]
  - DRUG INTERACTION [None]
  - EYE PAIN [None]
  - HEADACHE [None]
